FAERS Safety Report 6209570-4 (Version None)
Quarter: 2009Q2

REPORT INFORMATION
  Report Type: 
  Country: None (occurrence: None)
  Receive Date: 20090601
  Receipt Date: 20090527
  Transmission Date: 20091009
  Serious: Yes (Death)
  Sender: FDA-Public Use
  Company Number: US-AMGEN-KDL277239

PATIENT
  Sex: Male

DRUGS (1)
  1. EPOGEN [Suspect]
     Indication: DIALYSIS
     Dates: start: 20051201

REACTIONS (8)
  - BLOOD URINE PRESENT [None]
  - CATHETER RELATED COMPLICATION [None]
  - DEATH [None]
  - DIARRHOEA [None]
  - HAEMOGLOBIN DECREASED [None]
  - INFLUENZA [None]
  - MALAISE [None]
  - PAIN [None]
